FAERS Safety Report 25608364 (Version 1)
Quarter: 2025Q3

REPORT INFORMATION
  Report Type: Report from Study
  Country: GB (occurrence: GB)
  Receive Date: 20250726
  Receipt Date: 20250726
  Transmission Date: 20251021
  Serious: Yes (Other)
  Sender: CELLTRION
  Company Number: GB-CELLTRION INC.-2025GB024666

PATIENT

DRUGS (1)
  1. ADALIMUMAB-AATY [Suspect]
     Active Substance: ADALIMUMAB-AATY
     Indication: Crohn^s disease
     Dosage: 2 X YUFLYMA 40MG , EVERY TWO WEEKS
     Route: 058
     Dates: start: 202501

REACTIONS (3)
  - Suicidal ideation [Unknown]
  - Urticaria [Unknown]
  - Dissociative identity disorder [Unknown]
